FAERS Safety Report 16667753 (Version 1)
Quarter: 2019Q3

REPORT INFORMATION
  Report Type: Spontaneous
  Country: US (occurrence: US)
  Receive Date: 20190805
  Receipt Date: 20190805
  Transmission Date: 20191004
  Serious: Yes (Hospitalization)
  Sender: FDA-Public Use
  Company Number: US-BRISTOL-MYERS SQUIBB COMPANY-BMS-2019-073307

PATIENT
  Sex: Male
  Weight: 65.77 kg

DRUGS (2)
  1. VALIUM [Concomitant]
     Active Substance: DIAZEPAM
     Indication: PRODUCT USED FOR UNKNOWN INDICATION
     Dosage: UNK
     Route: 065
  2. COUMADIN [Suspect]
     Active Substance: WARFARIN SODIUM
     Indication: CARDIAC DISORDER
     Dosage: 5 MILLIGRAM DAILY
     Route: 048
     Dates: start: 201812

REACTIONS (4)
  - Laboratory test abnormal [Unknown]
  - Dizziness [Unknown]
  - Fatigue [Unknown]
  - Quality of life decreased [Unknown]
